FAERS Safety Report 9501325 (Version 1)
Quarter: 2013Q3

REPORT INFORMATION
  Report Type: Spontaneous
  Country: US (occurrence: US)
  Receive Date: 20130905
  Receipt Date: 20130905
  Transmission Date: 20140515
  Serious: Yes (Death)
  Sender: FDA-Public Use
  Company Number: US-GILEAD-2013-0082425

PATIENT
  Age: 20 Year
  Sex: Male

DRUGS (2)
  1. CAYSTON [Suspect]
     Indication: METABOLIC DISORDER
     Dosage: 75 MG, UNK
     Route: 055
     Dates: start: 20100915
  2. CAYSTON [Suspect]
     Indication: PSEUDOMONAS INFECTION

REACTIONS (1)
  - Death [Fatal]
